FAERS Safety Report 17045362 (Version 3)
Quarter: 2025Q1

REPORT INFORMATION
  Report Type: Report from Study
  Country: US (occurrence: US)
  Receive Date: 20191118
  Receipt Date: 20250103
  Transmission Date: 20250409
  Serious: Yes (Other)
  Sender: TAKEDA
  Company Number: US-SHIRE-US201939006

PATIENT
  Sex: Male

DRUGS (2)
  1. IDURSULFASE [Suspect]
     Active Substance: IDURSULFASE
     Indication: Mucopolysaccharidosis II
     Dosage: UNK, 1/WEEK
     Dates: start: 20160620
  2. IDURSULFASE [Suspect]
     Active Substance: IDURSULFASE

REACTIONS (3)
  - Deafness bilateral [Unknown]
  - Joint contracture [Recovered/Resolved]
  - Product dose omission issue [Unknown]
